FAERS Safety Report 17045535 (Version 1)
Quarter: 2019Q4

REPORT INFORMATION
  Report Type: Other
  Country: US (occurrence: US)
  Receive Date: 20191118
  Receipt Date: 20191118
  Transmission Date: 20200122
  Serious: No
  Sender: FDA-Public Use
  Company Number: US-LEADIANT BIOSCIENCES INC-2019STPI000164

PATIENT
  Sex: Male

DRUGS (6)
  1. PROCYSBI [Concomitant]
     Active Substance: CYSTEAMINE BITARTRATE
  2. CYSTARAN [Suspect]
     Active Substance: CYSTEAMINE HYDROCHLORIDE
     Indication: AMINO ACID METABOLISM DISORDER
     Dosage: 1 GTT DROPS, EVERY WAKING HOUR
     Route: 047
     Dates: start: 20140812
  3. VITAMIN D NOS [Concomitant]
     Active Substance: VITAMIN D NOS
  4. CARNITINE [Concomitant]
     Active Substance: CARNITINE
  5. POTASSIUM [Concomitant]
     Active Substance: POTASSIUM
  6. K-PHOS [Concomitant]
     Active Substance: POTASSIUM PHOSPHATE, MONOBASIC

REACTIONS (2)
  - Ocular hyperaemia [Not Recovered/Not Resolved]
  - Eye pain [Not Recovered/Not Resolved]
